FAERS Safety Report 7339427-7 (Version None)
Quarter: 2011Q1

REPORT INFORMATION
  Report Type: 
  Country: None (occurrence: None)
  Receive Date: 20110308
  Receipt Date: 20110228
  Transmission Date: 20110831
  Serious: Yes (Hospitalization)
  Sender: FDA-Public Use
  Company Number: JP-B.I. PHARMACEUTICALS,INC./RIDGEFIELD-2011-BP-06761YA

PATIENT
  Age: 86 Year
  Sex: Male

DRUGS (9)
  1. HOCHUUEKKITOU [Suspect]
  2. DRUG FOR HEART FAILURE [Concomitant]
     Indication: CARDIAC FAILURE
  3. TAMSULOSIN [Suspect]
     Route: 048
  4. SPIRIVA [Suspect]
  5. CELECOX [Suspect]
     Indication: OSTEOARTHRITIS
     Dosage: 200 MG
     Route: 048
     Dates: start: 20071225, end: 20101208
  6. KIPRES [Suspect]
     Route: 048
  7. VESICARE [Suspect]
     Route: 048
  8. NORVASC [Suspect]
     Route: 048
  9. DICLOFENAC SODIUM [Concomitant]
     Dates: start: 20080507, end: 20080716

REACTIONS (1)
  - CARDIAC FAILURE [None]
